FAERS Safety Report 10812340 (Version 1)
Quarter: 2015Q1

REPORT INFORMATION
  Report Type: Spontaneous
  Country: US (occurrence: None)
  Receive Date: 20150213
  Receipt Date: 20150213
  Transmission Date: 20150721
  Serious: Yes (Death)
  Sender: FDA-Public Use
  Company Number: None

PATIENT
  Age: 87 Year
  Sex: Male
  Weight: 61.4 kg

DRUGS (12)
  1. APAP [Concomitant]
     Active Substance: ACETAMINOPHEN
  2. NYSTATIN. [Concomitant]
     Active Substance: NYSTATIN
  3. REMICADE [Suspect]
     Active Substance: INFLIXIMAB
     Indication: COLITIS ULCERATIVE
     Route: 042
     Dates: start: 20110509, end: 20150122
  4. ALBUTEROL NEBS [Concomitant]
  5. D5W W/MVI [Concomitant]
  6. PROTONIX [Concomitant]
     Active Substance: PANTOPRAZOLE SODIUM
  7. MORPHINE [Concomitant]
     Active Substance: MORPHINE
  8. NARCAN [Concomitant]
     Active Substance: NALOXONE HYDROCHLORIDE
  9. DULCOLAX [Concomitant]
     Active Substance: BISACODYL OR DOCUSATE SODIUM
  10. HEPARIN [Concomitant]
     Active Substance: HEPARIN SODIUM
  11. DUONEBS [Concomitant]
  12. REGLAN [Concomitant]
     Active Substance: METOCLOPRAMIDE HYDROCHLORIDE

REACTIONS (4)
  - Pneumonia [None]
  - Acute respiratory distress syndrome [None]
  - Acute kidney injury [None]
  - Immunodeficiency [None]

NARRATIVE: CASE EVENT DATE: 20150212
